FAERS Safety Report 15328128 (Version 2)
Quarter: 2018Q3

REPORT INFORMATION
  Report Type: Spontaneous
  Country: IL (occurrence: IL)
  Receive Date: 20180828
  Receipt Date: 20180902
  Transmission Date: 20181010
  Serious: No
  Sender: FDA-Public Use
  Company Number: IL-BAXTER-2018BAX022469

PATIENT
  Sex: Male

DRUGS (11)
  1. GLUCOSE 50% W/V CONCENTRATE FOR SOLUTION FOR INFUSION [Suspect]
     Active Substance: DEXTROSE
     Indication: PARENTERAL NUTRITION
     Dosage: IMPORTED FROM UK, DEXTROSE 55% W/V
     Route: 065
  2. CERNEVIT [Suspect]
     Active Substance: VITAMINS
     Indication: PARENTERAL NUTRITION
     Dosage: CERNEVIT 5ML
     Route: 065
  3. POTASSIUM CHLORIDE. [Suspect]
     Active Substance: POTASSIUM CHLORIDE
     Indication: PARENTERAL NUTRITION
     Dosage: POTASSIUM CHLORIDE 15% 500ML 29G
     Route: 065
  4. CLINOLEIC  20% [Suspect]
     Active Substance: OLIVE OIL\SOYBEAN OIL
     Indication: PARENTERAL NUTRITION
     Dosage: CLINOLEIC 20% 500ML MONOBAG
     Route: 065
  5. SODIUM GLYCEROPHOSPHATE [Suspect]
     Active Substance: SODIUM GLYCEROPHOSPHATE
     Indication: PARENTERAL NUTRITION
     Dosage: SODIUM GLYCEROPHOSPHATE 21.6% W/V 500ML
     Route: 065
  6. STERILE WATER FOR INJECTION [Suspect]
     Active Substance: WATER
     Indication: PARENTERAL NUTRITION
     Dosage: IMPORTED FROM THE USA (MARION NC), WATER FOR INJECTION 3L
     Route: 065
  7. SODIUM CHLORIDE. [Suspect]
     Active Substance: SODIUM CHLORIDE
     Indication: PARENTERAL NUTRITION
     Dosage: SODIUM CHLORIDE 23.4% INJECTION 100ML 29G
     Route: 065
  8. ADDAMEL N [Suspect]
     Active Substance: CHROMIC CHLORIDE\CUPROUS CHLORIDE\FERRIC CHLORIDE\MANGANESE CHLORIDE\POTASSIUM IODIDE\SODIUM FLUORIDE\SODIUM MOLYBDATE DIHYDRATE\SODIUM SELENITE\ZINC CHLORIDE
     Indication: PARENTERAL NUTRITION
     Dosage: ADDAMEL N 10ML
     Route: 065
  9. CALCIUM GLUCONATE. [Suspect]
     Active Substance: CALCIUM GLUCONATE
     Indication: PARENTERAL NUTRITION
     Route: 065
  10. SYNTHAMIN [Suspect]
     Active Substance: AMINO ACIDS
     Indication: PARENTERAL NUTRITION
     Dosage: IMPORTED FROM UK, SYNTHAMIN 17, 10% WITHOUT ELECTROLYTES, 3000ML 29G
     Route: 065
  11. MAGNESIUM SULFATE. [Suspect]
     Active Substance: MAGNESIUM SULFATE
     Indication: PARENTERAL NUTRITION
     Route: 065

REACTIONS (2)
  - Blood pressure increased [Recovered/Resolved]
  - Tremor [Recovered/Resolved]
